FAERS Safety Report 9190214 (Version 1)
Quarter: 2013Q1

REPORT INFORMATION
  Report Type: Spontaneous
  Country: PL (occurrence: PL)
  Receive Date: 20130326
  Receipt Date: 20130326
  Transmission Date: 20140127
  Serious: Yes (Hospitalization, Other)
  Sender: FDA-Public Use
  Company Number: PL-AMGEN-POLSP2013020909

PATIENT
  Age: 51 Year
  Sex: Female
  Weight: 105 kg

DRUGS (1)
  1. ENBREL [Suspect]
     Indication: PRODUCT USED FOR UNKNOWN INDICATION
     Dosage: 50 MG / WEEK
     Route: 058
     Dates: start: 20120626, end: 20120913

REACTIONS (1)
  - Uveitis [Unknown]
